FAERS Safety Report 15963335 (Version 1)
Quarter: 2019Q1

REPORT INFORMATION
  Report Type: Spontaneous
  Country: CA (occurrence: CA)
  Receive Date: 20190214
  Receipt Date: 20190214
  Transmission Date: 20190417
  Serious: Yes (Hospitalization)
  Sender: FDA-Public Use
  Company Number: CA-TEVA-2019-CA-1012369

PATIENT
  Age: 73 Year
  Sex: Male

DRUGS (2)
  1. IRBESARTAN. [Suspect]
     Active Substance: IRBESARTAN
     Indication: HYPERTENSION
     Dosage: 300 MILLIGRAM DAILY;
     Route: 048
  2. AVAPRO [Concomitant]
     Active Substance: IRBESARTAN

REACTIONS (2)
  - Blood pressure inadequately controlled [Recovered/Resolved]
  - Product substitution issue [Recovered/Resolved]
